FAERS Safety Report 17562699 (Version 2)
Quarter: 2020Q4

REPORT INFORMATION
  Report Type: Report from Study
  Country: US (occurrence: US)
  Receive Date: 20200319
  Receipt Date: 20201110
  Transmission Date: 20210113
  Serious: Yes (Other)
  Sender: FDA-Public Use
  Company Number: NVSC2020US073557

PATIENT
  Age: 23 Year
  Sex: Male

DRUGS (3)
  1. KYMRIAH [Suspect]
     Active Substance: TISAGENLECLEUCEL
     Indication: LYMPHOCYTIC LEUKAEMIA
     Dosage: UNK UNK, ONCE/SINGLE
     Route: 042
     Dates: start: 20190325
  2. CYCLOPHOSPHAMIDE. [Concomitant]
     Active Substance: CYCLOPHOSPHAMIDE
     Indication: CHEMOTHERAPY
     Dosage: UNK
     Route: 065
  3. FLUDARABINE [Concomitant]
     Active Substance: FLUDARABINE PHOSPHATE
     Indication: CHEMOTHERAPY
     Dosage: UNK
     Route: 065

REACTIONS (13)
  - Thrombocytopenia [Not Recovered/Not Resolved]
  - Clostridium difficile infection [Unknown]
  - Pyrexia [Recovered/Resolved]
  - Fusobacterium infection [Unknown]
  - Aphasia [Recovered/Resolved]
  - Cytopenia [Not Recovered/Not Resolved]
  - Corynebacterium infection [Unknown]
  - Capnocytophaga infection [Unknown]
  - Gastrointestinal viral infection [Unknown]
  - Cytokine release syndrome [Recovered/Resolved]
  - Neurotoxicity [Recovered/Resolved]
  - Seizure [Recovered/Resolved]
  - Herpes simplex [Unknown]
